FAERS Safety Report 9437062 (Version 1)
Quarter: 2013Q3

REPORT INFORMATION
  Report Type: Spontaneous
  Country: US (occurrence: US)
  Receive Date: 20130802
  Receipt Date: 20130802
  Transmission Date: 20140515
  Serious: Yes (Other)
  Sender: FDA-Public Use
  Company Number: US-PFIZER INC-2013220989

PATIENT
  Sex: Female

DRUGS (3)
  1. XALATAN [Suspect]
     Dosage: 1 GTT, 1X/DAY (ONE DROP IN EACH EYE EVERY NIGHT)
     Route: 047
     Dates: start: 201210
  2. AZOPT [Suspect]
     Dosage: 1 GTT, 1X/DAY (ONE DROP EACH EYE EACH NIGHT)
     Route: 047
     Dates: start: 20130220
  3. TIMOLOL [Suspect]
     Dosage: UNK

REACTIONS (7)
  - Hypoacusis [Unknown]
  - Throat irritation [Unknown]
  - Burning sensation [Unknown]
  - Nasal discomfort [Unknown]
  - Dental discomfort [Unknown]
  - Abdominal discomfort [Unknown]
  - Feeling abnormal [Unknown]
